FAERS Safety Report 5334172-1 (Version None)
Quarter: 2007Q2

REPORT INFORMATION
  Report Type: 
  Country: None (occurrence: None)
  Receive Date: 20070525
  Receipt Date: 20070515
  Transmission Date: 20071010
  Serious: Yes (Hospitalization)
  Sender: FDA-Public Use
  Company Number: HQWYE234616MAY07

PATIENT
  Sex: Male
  Weight: 127.12 kg

DRUGS (2)
  1. PROTONIX [Suspect]
     Indication: DYSPEPSIA
     Route: 048
     Dates: start: 20070502, end: 20070509
  2. LUNESTA [Suspect]
     Dosage: UNKNOWN
     Route: 048
     Dates: start: 20070502

REACTIONS (1)
  - CEREBROVASCULAR ACCIDENT [None]
